FAERS Safety Report 6121051-5 (Version None)
Quarter: 2009Q1

REPORT INFORMATION
  Report Type: 
  Country: None (occurrence: None)
  Receive Date: 20090312
  Receipt Date: 20090226
  Transmission Date: 20090719
  Serious: Yes (Hospitalization)
  Sender: FDA-Public Use
  Company Number: DSJ-2008-14817

PATIENT
  Age: 59 Year
  Sex: Female
  Weight: 73.2 kg

DRUGS (10)
  1. OLMESARTAN MEDOXOMIL [Suspect]
     Indication: ESSENTIAL HYPERTENSION
     Dosage: 20 MG (20 MG,1 IN 1 D), PER ORAL 40 MG (40 MG, 1 IN 1 D) PER ORAL
     Route: 048
     Dates: start: 20060531, end: 20080212
  2. OLMESARTAN MEDOXOMIL [Suspect]
     Indication: ESSENTIAL HYPERTENSION
     Dosage: 20 MG (20 MG,1 IN 1 D), PER ORAL 40 MG (40 MG, 1 IN 1 D) PER ORAL
     Route: 048
     Dates: start: 20080213, end: 20080409
  3. ATELEC (CILNIDIPINE) (CLINIDIPINE) [Suspect]
     Dosage: 20 MG (20 MG, 1 IN 1 D), PER ORAL
     Route: 048
     Dates: start: 20080112
  4. CALBLOCK (AZELNIDIPINE) (AZELNIDIPINE) [Concomitant]
  5. ADALAT CC [Concomitant]
  6. THYRADIN-S (LEVOTHYROXINE SODIUM) (LEVOTHYROXINE SODIUM) [Concomitant]
  7. AMARYL [Concomitant]
  8. BEZATOL SR (BEZAFIBRATE) (BEZAFIBRATE) [Concomitant]
  9. ACTOS [Concomitant]
  10. CRESTOR [Concomitant]

REACTIONS (3)
  - BLOOD IMMUNOGLOBULIN G INCREASED [None]
  - IDIOPATHIC THROMBOCYTOPENIC PURPURA [None]
  - PROTEIN URINE PRESENT [None]
